FAERS Safety Report 8309294-3 (Version None)
Quarter: 2012Q2

REPORT INFORMATION
  Report Type: 
  Country: None (occurrence: None)
  Receive Date: 20120425
  Receipt Date: 20120416
  Transmission Date: 20120825
  Serious: Yes (Hospitalization, Other)
  Sender: FDA-Public Use
  Company Number: US-ASTRAZENECA-2012SE25029

PATIENT
  Age: 31 Year
  Sex: Male
  Weight: 88.5 kg

DRUGS (13)
  1. PERCOCET TENS [Concomitant]
  2. SYNTHROID [Concomitant]
  3. SEROQUEL [Suspect]
     Indication: SLEEP DISORDER
     Route: 048
     Dates: start: 20050101
  4. SEROQUEL [Suspect]
     Indication: SERUM SEROTONIN DECREASED
     Route: 048
     Dates: start: 20050101
  5. VALIUM [Concomitant]
  6. NEURONTIN [Concomitant]
  7. BACLOFEN [Concomitant]
  8. DEXELANT [Concomitant]
     Indication: GASTROOESOPHAGEAL REFLUX DISEASE
  9. FENTANYL [Concomitant]
  10. CINEMET [Concomitant]
  11. ARTHROTEC [Concomitant]
  12. PRINEXYTHIENDYL [Concomitant]
  13. LOPRESSOR [Concomitant]
     Indication: HYPERTENSION

REACTIONS (12)
  - MALAISE [None]
  - NERVOUS SYSTEM DISORDER [None]
  - APPARENT DEATH [None]
  - AUTOIMMUNE DISORDER [None]
  - IMPAIRED WORK ABILITY [None]
  - MITRAL VALVE PROLAPSE [None]
  - PAIN [None]
  - GENERAL PHYSICAL HEALTH DETERIORATION [None]
  - INTENTIONAL DRUG MISUSE [None]
  - HEART RATE IRREGULAR [None]
  - ANKYLOSING SPONDYLITIS [None]
  - SPINAL CORD DISORDER [None]
